FAERS Safety Report 8314348-1 (Version None)
Quarter: 2012Q2

REPORT INFORMATION
  Report Type: 
  Country: None (occurrence: None)
  Receive Date: 20120426
  Receipt Date: 20110808
  Transmission Date: 20120825
  Serious: Yes (Other)
  Sender: FDA-Public Use
  Company Number: US-TEVA-US023684

PATIENT
  Sex: Female
  Weight: 56 kg

DRUGS (9)
  1. SYNTHROID [Concomitant]
     Indication: THYROID DISORDER
     Dosage: .25 MICROGRAM;
     Route: 048
     Dates: start: 20020101
  2. ASPIRIN [Concomitant]
     Indication: CARDIAC DISORDER
     Dosage: 81 MILLIGRAM;
     Route: 048
     Dates: start: 20030101
  3. MULTI-VITAMIN [Concomitant]
     Indication: SUPPLEMENTATION THERAPY
     Route: 048
  4. NORVASC [Concomitant]
     Indication: HYPERTENSION
  5. WELLBUTRIN [Suspect]
     Indication: DEPRESSION
     Dosage: 150 MILLIGRAM;
     Route: 048
     Dates: start: 20050101
  6. NORVASC [Concomitant]
     Indication: ANGINA PECTORIS
     Dosage: 5 MILLIGRAM;
     Route: 048
     Dates: start: 20030301
  7. PROVIGIL [Suspect]
     Indication: MULTIPLE SCLEROSIS
     Dosage: 200 MILLIGRAM;
     Route: 048
     Dates: start: 20030101
  8. CLONAZEPAM [Concomitant]
     Indication: ANXIETY
     Dosage: .75 MILLIGRAM;
     Route: 048
     Dates: start: 20060101
  9. CYMBALTA [Suspect]
     Indication: DEPRESSION
     Dosage: 30 MILLIGRAM;
     Route: 048
     Dates: start: 20080528, end: 20080528

REACTIONS (9)
  - DRUG INTERACTION [None]
  - DYSTONIA [None]
  - DEPRESSION [None]
  - MOOD SWINGS [None]
  - SUICIDAL IDEATION [None]
  - ANXIETY [None]
  - IRRITABILITY [None]
  - THERAPEUTIC RESPONSE UNEXPECTED [None]
  - CHILLS [None]
